FAERS Safety Report 14996532 (Version 1)
Quarter: 2018Q2

REPORT INFORMATION
  Report Type: Spontaneous
  Country: US (occurrence: US)
  Receive Date: 20180518
  Receipt Date: 20180518
  Transmission Date: 20180711
  Serious: Yes (Hospitalization)
  Sender: FDA-Public Use
  Company Number: None

PATIENT
  Sex: Male

DRUGS (16)
  1. QUETIAPINE. [Concomitant]
     Active Substance: QUETIAPINE
  2. VALACYCLOVIR [Concomitant]
     Active Substance: VALACYCLOVIR HYDROCHLORIDE
  3. GABAPENTIN. [Concomitant]
     Active Substance: GABAPENTIN
  4. FINASTERIDE. [Concomitant]
     Active Substance: FINASTERIDE
  5. ROPINIROLE. [Concomitant]
     Active Substance: ROPINIROLE
  6. LEVOFLOXACIN. [Concomitant]
     Active Substance: LEVOFLOXACIN
  7. AMOX/K CLAV [Concomitant]
     Active Substance: AMOXICILLIN\CLAVULANATE POTASSIUM
  8. ATENOLOL. [Concomitant]
     Active Substance: ATENOLOL
  9. CLONIDINE. [Concomitant]
     Active Substance: CLONIDINE
  10. FUROSEMIDE. [Concomitant]
     Active Substance: FUROSEMIDE
  11. TACROLIMUS 1MG [Suspect]
     Active Substance: TACROLIMUS
     Indication: RENAL TRANSPLANT
     Dosage: OTHER FREQUENCY: 2 MG EVERY EVENING; 3 MG EVERY MORNING?
     Route: 048
     Dates: start: 20150918
  12. PREDNISONE. [Concomitant]
     Active Substance: PREDNISONE
  13. MYCOPHENOLATE, 250MG [Suspect]
     Active Substance: MYCOPHENOLATE MOFETIL
     Indication: RENAL TRANSPLANT
     Route: 048
     Dates: start: 20150821
  14. AMLODIPINE [Concomitant]
     Active Substance: AMLODIPINE BESYLATE
  15. DULOXETINE. [Concomitant]
     Active Substance: DULOXETINE
  16. METRONIDAZOL [Concomitant]
     Active Substance: METRONIDAZOLE

REACTIONS (1)
  - Transplant rejection [None]
